FAERS Safety Report 6145811-X (Version None)
Quarter: 2009Q2

REPORT INFORMATION
  Report Type: 
  Country: None (occurrence: None)
  Receive Date: 20090403
  Receipt Date: 20090306
  Transmission Date: 20091009
  Serious: Yes (Hospitalization)
  Sender: FDA-Public Use
  Company Number: TCI2009A00337

PATIENT
  Age: 79 Year
  Sex: Female

DRUGS (8)
  1. ACTOS [Suspect]
     Indication: DIABETES MELLITUS
     Dosage: 30 MG (30 MG, 1 IN 1 D); PER ORAL
     Route: 048
     Dates: start: 20080905, end: 20090123
  2. HICEE (ASCORBIC ACID) [Concomitant]
  3. BASEN (VOGLIBOSE) [Concomitant]
  4. DOGMATYL (SULPIRIDE) [Concomitant]
  5. METHYCOBAL (MECOBALAMIN) [Concomitant]
  6. PRAVASTATIN [Concomitant]
  7. AMARYL [Concomitant]
  8. MEDET (METFORMIN HYDROCHLORIDE) [Concomitant]

REACTIONS (4)
  - DYSPNOEA EXERTIONAL [None]
  - GENERALISED OEDEMA [None]
  - PLEURAL EFFUSION [None]
  - PULMONARY CONGESTION [None]
